FAERS Safety Report 21142622 (Version 2)
Quarter: 2024Q2

REPORT INFORMATION
  Report Type: Spontaneous
  Country: IT (occurrence: None)
  Receive Date: 20220728
  Receipt Date: 20240621
  Transmission Date: 20240716
  Serious: Yes (Hospitalization)
  Sender: FDA-Public Use
  Company Number: None

PATIENT
  Age: 68 Year
  Sex: Male

DRUGS (12)
  1. CALCIJEX [Concomitant]
     Active Substance: CALCITRIOL
  2. PANTOPRAZOLE SODIUM [Concomitant]
     Active Substance: PANTOPRAZOLE SODIUM
  3. ACETAMINOPHEN [Concomitant]
     Active Substance: ACETAMINOPHEN
  4. POTASSIUM CHLORIDE [Concomitant]
     Active Substance: POTASSIUM CHLORIDE
  5. PIPERACILLIN SODIUM\TAZOBACTAM SODIUM [Suspect]
     Active Substance: PIPERACILLIN SODIUM\TAZOBACTAM SODIUM
     Dosage: 4G+500MG X 3 DIE  ()
     Route: 042
     Dates: start: 20220530, end: 20220530
  6. BISOPROLOL FUMARATE [Concomitant]
     Active Substance: BISOPROLOL FUMARATE
  7. MAGNESIO PIDOLATO [Concomitant]
  8. HALOPERIDOL [Concomitant]
     Active Substance: HALOPERIDOL
  9. TELMISARTAN [Concomitant]
     Active Substance: TELMISARTAN
  10. CALCIO CARBONATO [Concomitant]
  11. HUMALOG [Concomitant]
     Active Substance: INSULIN LISPRO
     Indication: Diabetes mellitus
  12. FUROSEMIDE [Concomitant]
     Active Substance: FUROSEMIDE

REACTIONS (1)
  - Rash [Recovered/Resolved]

NARRATIVE: CASE EVENT DATE: 20220530
